FAERS Safety Report 13811091 (Version 1)
Quarter: 2017Q3

REPORT INFORMATION
  Report Type: Spontaneous
  Country: US (occurrence: US)
  Receive Date: 20170728
  Receipt Date: 20170728
  Transmission Date: 20171127
  Serious: No
  Sender: FDA-Public Use
  Company Number: US-ROCHE-1087432

PATIENT
  Sex: Male
  Weight: 70.37 kg

DRUGS (1)
  1. BONIVA [Suspect]
     Active Substance: IBANDRONATE SODIUM
     Indication: OSTEOPOROSIS

REACTIONS (3)
  - Aortic valve stenosis [Unknown]
  - Oesophageal stenosis [Unknown]
  - Dysphagia [Unknown]
